FAERS Safety Report 14267672 (Version 1)
Quarter: 2017Q4

REPORT INFORMATION
  Report Type: Spontaneous
  Country: US (occurrence: US)
  Receive Date: 20171211
  Receipt Date: 20171211
  Transmission Date: 20180321
  Serious: Yes (Death, Other)
  Sender: FDA-Public Use
  Company Number: US-VIFOR (INTERNATIONAL) INC.-VIT-2017-13439

PATIENT
  Age: 76 Year
  Sex: Male
  Weight: 63.5 kg

DRUGS (3)
  1. MIRCERA [Suspect]
     Active Substance: METHOXY POLYETHYLENE GLYCOL-EPOETIN BETA
     Indication: NEPHROGENIC ANAEMIA
     Route: 040
     Dates: start: 20171122, end: 20171122
  2. VENOFER [Suspect]
     Active Substance: IRON SUCROSE
     Indication: PRODUCT USED FOR UNKNOWN INDICATION
     Route: 040
  3. HECTOROL [Concomitant]
     Active Substance: DOXERCALCIFEROL
     Route: 040

REACTIONS (2)
  - Unresponsive to stimuli [Unknown]
  - Death [Fatal]

NARRATIVE: CASE EVENT DATE: 20171122
